FAERS Safety Report 16763693 (Version 1)
Quarter: 2019Q3

REPORT INFORMATION
  Report Type: Spontaneous
  Country: JP (occurrence: JP)
  Receive Date: 20190902
  Receipt Date: 20190902
  Transmission Date: 20191005
  Serious: Yes (Hospitalization)
  Sender: FDA-Public Use
  Company Number: JP-GLAXOSMITHKLINE-JP2019JPN155845

PATIENT
  Age: 7 Year
  Sex: Female

DRUGS (6)
  1. FLUTIDE [Suspect]
     Active Substance: FLUTICASONE PROPIONATE
     Indication: ASTHMA
     Dosage: 200 ?G, 1D
     Route: 055
  2. BUDESONIDE. [Concomitant]
     Active Substance: BUDESONIDE
     Indication: ASTHMA
     Dosage: UNK
  3. SERETIDE [Suspect]
     Active Substance: FLUTICASONE PROPIONATE\SALMETEROL XINAFOATE
     Indication: ASTHMA
     Dosage: UNK
     Route: 055
  4. OMALIZUMAB (GENETICAL RECOMBINATION) [Concomitant]
     Indication: ASTHMA
     Dosage: 375 MG, TWICE A MONTH
  5. FLUTIDE [Suspect]
     Active Substance: FLUTICASONE PROPIONATE
     Dosage: 400 ?G, 1D
     Route: 055
  6. MEPOLIZUMAB [Suspect]
     Active Substance: MEPOLIZUMAB
     Indication: ASTHMA
     Dosage: 100 MG, ONCE A MONTH
     Route: 058

REACTIONS (8)
  - Quality of life decreased [Recovering/Resolving]
  - Rhinitis allergic [Unknown]
  - Asthma [Unknown]
  - Tremor [Unknown]
  - Prescribed overdose [Unknown]
  - Therapeutic product effect incomplete [Unknown]
  - Treatment noncompliance [Unknown]
  - Tachycardia [Unknown]
